FAERS Safety Report 15370860 (Version 1)
Quarter: 2018Q3

REPORT INFORMATION
  Report Type: Spontaneous
  Country: US (occurrence: US)
  Receive Date: 20180911
  Receipt Date: 20180911
  Transmission Date: 20181010
  Serious: No
  Sender: FDA-Public Use
  Company Number: US-PERRIGO-18US007947

PATIENT
  Age: 49 Year
  Sex: Male
  Weight: 68.48 kg

DRUGS (1)
  1. TESTOSTERONE. [Suspect]
     Active Substance: TESTOSTERONE
     Indication: BLOOD TESTOSTERONE DECREASED
     Dosage: 120 MG DAILY
     Route: 061
     Dates: start: 201801, end: 20180804

REACTIONS (4)
  - Application site irritation [Recovering/Resolving]
  - Application site pain [Recovering/Resolving]
  - Application site infection [Recovering/Resolving]
  - Application site injury [Not Recovered/Not Resolved]

NARRATIVE: CASE EVENT DATE: 201801
